FAERS Safety Report 10273135 (Version 1)
Quarter: 2014Q3

REPORT INFORMATION
  Report Type: Spontaneous
  Country: AU (occurrence: AU)
  Receive Date: 20140702
  Receipt Date: 20140702
  Transmission Date: 20150326
  Serious: Yes (Other)
  Sender: FDA-Public Use
  Company Number: AU-MYLANLABS-2014S1014893

PATIENT
  Age: 52 Year
  Sex: Female

DRUGS (1)
  1. ELEVA [Suspect]
     Active Substance: SERTRALINE HYDROCHLORIDE
     Indication: PRODUCT USED FOR UNKNOWN INDICATION
     Dates: start: 201401

REACTIONS (1)
  - Product package associated injury [Not Recovered/Not Resolved]

NARRATIVE: CASE EVENT DATE: 20140619
